FAERS Safety Report 9296632 (Version 1)
Quarter: 2013Q2

REPORT INFORMATION
  Report Type: Spontaneous
  Country: GB (occurrence: GB)
  Receive Date: 20130517
  Receipt Date: 20130517
  Transmission Date: 20140414
  Serious: Yes (Life-Threatening, Other)
  Sender: FDA-Public Use
  Company Number: PHHY2013GB049029

PATIENT
  Age: 58 Year
  Sex: Female
  Weight: 58 kg

DRUGS (5)
  1. INDAPAMIDE [Suspect]
     Indication: HYPERTENSION
     Dosage: 1.5 MG, MODIFIED RELEASE
     Route: 048
     Dates: start: 20111026, end: 20120904
  2. RAMIPRIL [Concomitant]
     Indication: HYPERTENSION
     Dosage: 10 MG, UNK
     Route: 048
     Dates: start: 20100610
  3. ARIMIDEX [Concomitant]
     Indication: BREAST CANCER
     Dosage: 1 MG, UNK
     Route: 048
     Dates: start: 20100407
  4. ALENDRONIC ACID [Concomitant]
     Indication: OSTEOPOROSIS PROPHYLAXIS
     Dosage: 70 MG, UNK
     Route: 048
     Dates: start: 20100407
  5. ADCAL-D3 [Concomitant]
     Indication: OSTEOPOROSIS PROPHYLAXIS
     Dosage: 2 DF, QD
     Route: 048
     Dates: start: 20100407

REACTIONS (2)
  - Hyponatraemia [Recovered/Resolved]
  - Epilepsy [Recovered/Resolved]
